FAERS Safety Report 15690314 (Version 1)
Quarter: 2018Q4

REPORT INFORMATION
  Report Type: Spontaneous
  Country: US (occurrence: US)
  Receive Date: 20181126
  Receipt Date: 20181126
  Transmission Date: 20190205
  Serious: No
  Sender: FDA-Public Use
  Company Number: None

PATIENT
  Age: 74 Year
  Sex: Female

DRUGS (1)
  1. BORTEZOMIB 3.5MG PWD SDV INJ [Suspect]
     Active Substance: BORTEZOMIB
     Dosage: ?          OTHER FREQUENCY:UNKNOWN;?
     Route: 058
     Dates: start: 201809

REACTIONS (3)
  - Product substitution error [None]
  - Product dispensing error [None]
  - Incorrect route of product administration [None]

NARRATIVE: CASE EVENT DATE: 20180718
